FAERS Safety Report 9220908 (Version 3)
Quarter: 2013Q4

REPORT INFORMATION
  Report Type: Spontaneous
  Country: IT (occurrence: IT)
  Receive Date: 20130409
  Receipt Date: 20131018
  Transmission Date: 20140711
  Serious: Yes (Other)
  Sender: FDA-Public Use
  Company Number: IT-ELI_LILLY_AND_COMPANY-IT201303009866

PATIENT
  Age: 48 Year
  Sex: Male
  Weight: 60 kg

DRUGS (6)
  1. ZYPADHERA [Suspect]
     Indication: SCHIZOPHRENIA
     Dosage: 300 MG, 2/M (EVERY TWO WEEKS)
     Route: 030
     Dates: start: 20121214
  2. ZYPADHERA [Suspect]
     Dosage: 300 MG, EVERY 3 WEEKS
  3. ZYPADHERA [Suspect]
     Dosage: 405 MG, MONTHLY (1/M) (EVERY FOUR WEEKS)
     Route: 030
     Dates: start: 201304
  4. DELORAZEPAM [Concomitant]
     Dosage: 2 MG, TID
     Route: 065
     Dates: end: 20130220
  5. GABAPENTIN [Concomitant]
     Dosage: 400 MG, TID
     Route: 065
     Dates: end: 20130220
  6. PROZIN                             /00011902/ [Concomitant]
     Dosage: 100 MG, EACH EVENING
     Route: 065
     Dates: end: 20130220

REACTIONS (4)
  - Hypoaesthesia [Unknown]
  - Somnolence [Recovered/Resolved]
  - Sedation [Recovered/Resolved]
  - Injection site pain [Unknown]
